FAERS Safety Report 20907511 (Version 4)
Quarter: 2022Q3

REPORT INFORMATION
  Report Type: Report from Study
  Country: PT (occurrence: None)
  Receive Date: 20220602
  Receipt Date: 20220805
  Transmission Date: 20221026
  Serious: Yes (Hospitalization)
  Sender: FDA-Public Use
  Company Number: PT-Eisai Medical Research-EC-2022-115874

PATIENT
  Age: 16 Year
  Sex: Female

DRUGS (14)
  1. FYCOMPA [Suspect]
     Active Substance: PERAMPANEL
     Indication: Epilepsy
     Route: 048
     Dates: start: 20210201, end: 20210216
  2. FYCOMPA [Suspect]
     Active Substance: PERAMPANEL
     Route: 048
     Dates: start: 20210217, end: 20210313
  3. FYCOMPA [Suspect]
     Active Substance: PERAMPANEL
     Route: 048
     Dates: start: 20210314, end: 20210505
  4. FYCOMPA [Suspect]
     Active Substance: PERAMPANEL
     Route: 048
     Dates: start: 20210506, end: 20211129
  5. FYCOMPA [Suspect]
     Active Substance: PERAMPANEL
     Route: 048
     Dates: start: 20211130, end: 20211225
  6. FYCOMPA [Suspect]
     Active Substance: PERAMPANEL
     Route: 048
     Dates: start: 20211226, end: 20220131
  7. FYCOMPA [Suspect]
     Active Substance: PERAMPANEL
     Dosage: DOSE UNKNOWN
     Route: 048
     Dates: start: 2022, end: 20220517
  8. FYCOMPA [Suspect]
     Active Substance: PERAMPANEL
     Dosage: 12 TABLETS - OVERDOSE
     Route: 048
     Dates: start: 20220518, end: 20220518
  9. FYCOMPA [Suspect]
     Active Substance: PERAMPANEL
     Route: 048
     Dates: start: 202205
  10. SERTRALINE [Suspect]
     Active Substance: SERTRALINE HYDROCHLORIDE
     Indication: Depression
     Route: 048
     Dates: start: 20211116, end: 20220517
  11. SERTRALINE [Suspect]
     Active Substance: SERTRALINE HYDROCHLORIDE
     Dosage: 100MG - 16 TABLETS - OVERDOSE
     Route: 048
     Dates: start: 20220518, end: 20220518
  12. SERTRALINE [Suspect]
     Active Substance: SERTRALINE HYDROCHLORIDE
     Route: 048
     Dates: start: 202205
  13. ETHOSUXIMIDE [Concomitant]
     Active Substance: ETHOSUXIMIDE
     Indication: Epilepsy
     Dosage: 500 + 750 MG
     Route: 048
     Dates: start: 20220131
  14. RISPERIDONE [Concomitant]
     Active Substance: RISPERIDONE
     Indication: Depression
     Route: 048
     Dates: start: 20220404

REACTIONS (2)
  - Suicide attempt [Recovering/Resolving]
  - Intentional overdose [Recovering/Resolving]

NARRATIVE: CASE EVENT DATE: 20220518
